FAERS Safety Report 4318879-0 (Version None)
Quarter: 2004Q1

REPORT INFORMATION
  Report Type: 
  Country: None (occurrence: None)
  Receive Date: 20040318
  Receipt Date: 20040308
  Transmission Date: 20041129
  Serious: Yes (Death, Hospitalization)
  Sender: FDA-Public Use
  Company Number: US-ROCHE-361282

PATIENT
  Age: 56 Year
  Sex: Male

DRUGS (12)
  1. XELODA [Suspect]
     Indication: COLON CANCER
     Route: 048
     Dates: start: 20030115
  2. XELODA [Suspect]
     Dosage: DOSAGE INCREASED.
     Route: 048
  3. UNKNOWN DRUG [Concomitant]
     Indication: COLON CANCER
     Dosage: DRUG REPORTED WAS ^OXYPLATIN^.
     Dates: start: 20030115
  4. REGLAN [Concomitant]
  5. UNKNOWN DRUG [Concomitant]
     Dosage: DRUG REPORTED WAS ^LANTIS^.
  6. CARDURA [Concomitant]
  7. ATENOLOL [Concomitant]
  8. LEVAQUIN [Concomitant]
  9. COLACE [Concomitant]
  10. SORBITOL [Concomitant]
  11. REGULAR INSULIN [Concomitant]
  12. ANTIBIOTICS NOS [Concomitant]
     Indication: STREPTOCOCCAL INFECTION

REACTIONS (9)
  - HAEMORRHAGE [None]
  - HYPOGLYCAEMIA [None]
  - INFLAMMATION LOCALISED [None]
  - LEG AMPUTATION [None]
  - LIMB INJURY [None]
  - PALMAR-PLANTAR ERYTHRODYSAESTHESIA SYNDROME [None]
  - RENAL FAILURE CHRONIC [None]
  - STREPTOCOCCAL INFECTION [None]
  - TOE AMPUTATION [None]
